FAERS Safety Report 23083004 (Version 1)
Quarter: 2023Q4

REPORT INFORMATION
  Report Type: Spontaneous
  Country: US (occurrence: US)
  Receive Date: 20231019
  Receipt Date: 20231019
  Transmission Date: 20240110
  Serious: Yes (Hospitalization, Other)
  Sender: FDA-Public Use
  Company Number: US-AMGEN-USASP2023182068

PATIENT

DRUGS (1)
  1. PROLIA [Suspect]
     Active Substance: DENOSUMAB
     Indication: Osteoporosis
     Dosage: 60 MILLIGRAM, Q6MO
     Route: 065

REACTIONS (32)
  - Unevaluable event [Unknown]
  - Spinal fracture [Unknown]
  - Hip fracture [Unknown]
  - Pelvic fracture [Unknown]
  - Lower limb fracture [Unknown]
  - Skull fracture [Unknown]
  - Sternal fracture [Unknown]
  - Osteoporotic fracture [Unknown]
  - Craniofacial fracture [Unknown]
  - Surgery [Unknown]
  - Fracture [Unknown]
  - Rib fracture [Unknown]
  - Wrist fracture [Unknown]
  - Radius fracture [Unknown]
  - Forearm fracture [Unknown]
  - Humerus fracture [Unknown]
  - Shoulder fracture [Unknown]
  - Foot fracture [Unknown]
  - Tibia fracture [Unknown]
  - Fibula fracture [Unknown]
  - Ankle fracture [Unknown]
  - Fractured coccyx [Unknown]
  - Hand fracture [Unknown]
  - Scapula fracture [Unknown]
  - Adverse event [Unknown]
  - Illness [Unknown]
  - Tooth disorder [Unknown]
  - Skin disorder [Unknown]
  - Infection [Unknown]
  - Upper respiratory tract infection [Unknown]
  - Urinary tract infection [Unknown]
  - Musculoskeletal pain [Unknown]
